FAERS Safety Report 18578702 (Version 1)
Quarter: 2020Q4

REPORT INFORMATION
  Report Type: Spontaneous
  Country: US (occurrence: US)
  Receive Date: 20201202
  Receipt Date: 20201202
  Transmission Date: 20210114
  Serious: Yes (Hospitalization)
  Sender: FDA-Public Use
  Company Number: None

PATIENT
  Sex: Female

DRUGS (1)
  1. ENTECAVIR 0.5MG SOLCO HEALTHCARE [Suspect]
     Active Substance: ENTECAVIR
     Indication: RHEUMATOID ARTHRITIS
     Route: 048
     Dates: start: 20201102

REACTIONS (2)
  - Hospitalisation [None]
  - Therapy interrupted [None]
